FAERS Safety Report 8316779 (Version 3)
Quarter: 2013Q1

REPORT INFORMATION
  Report Type: Spontaneous
  Country: US (occurrence: US)
  Receive Date: 20111230
  Receipt Date: 20130201
  Transmission Date: 20140127
  Serious: Yes (Hospitalization, Other)
  Sender: FDA-Public Use
  Company Number: US-ELI_LILLY_AND_COMPANY-US201103004925

PATIENT
  Age: 80 Year
  Sex: Female

DRUGS (12)
  1. FORTEO [Suspect]
     Indication: OSTEOPOROSIS
     Dosage: 20 UG, QD
     Route: 065
     Dates: start: 20110314
  2. FORTEO [Suspect]
     Dosage: 20 UG, QD
     Route: 065
  3. FORTEO [Suspect]
     Dosage: 20 UG, QD
     Dates: end: 201111
  4. FORTEO [Suspect]
     Dosage: 20 UG, QD
     Route: 065
     Dates: start: 201112
  5. AZOR                               /06230801/ [Concomitant]
     Indication: HYPERTENSION
  6. PREDNISONE [Concomitant]
     Dosage: 2 MG, QD
  7. FOLIC ACID [Concomitant]
     Dosage: 2 MG, QD
  8. VITAMIN D NOS [Concomitant]
     Dosage: 50000 U, EVERY OTHER WEEK
  9. CRESTOR [Concomitant]
     Indication: BLOOD CHOLESTEROL
     Dosage: 20 MG, QD
  10. ASPIRIN [Concomitant]
     Dosage: 81 MG, UNK
  11. ANALGESICS [Concomitant]
     Indication: PAIN
  12. COSOPT [Concomitant]
     Dosage: 2 DF, QD

REACTIONS (6)
  - Fracture malunion [Recovering/Resolving]
  - Bone disorder [Unknown]
  - Lower limb fracture [Unknown]
  - Hypertension [Unknown]
  - Blood calcium increased [Unknown]
  - Injection site nodule [Recovered/Resolved]
